FAERS Safety Report 13017822 (Version 1)
Quarter: 2016Q4

REPORT INFORMATION
  Report Type: Spontaneous
  Country: US (occurrence: US)
  Receive Date: 20161212
  Receipt Date: 20161212
  Transmission Date: 20170207
  Serious: No
  Sender: FDA-Public Use
  Company Number: US-GLAXOSMITHKLINE-US2016182994

PATIENT
  Age: 45 Year
  Sex: Male

DRUGS (1)
  1. ABREVA [Suspect]
     Active Substance: DOCOSANOL
     Indication: ORAL HERPES
     Dosage: UNK
     Dates: start: 20161127, end: 20161207

REACTIONS (3)
  - Drug ineffective [Unknown]
  - Lip dry [Not Recovered/Not Resolved]
  - Condition aggravated [Not Recovered/Not Resolved]
